FAERS Safety Report 10979823 (Version 1)
Quarter: 2015Q2

REPORT INFORMATION
  Report Type: Spontaneous
  Country: US (occurrence: US)
  Receive Date: 20150402
  Receipt Date: 20150402
  Transmission Date: 20150821
  Serious: No
  Sender: FDA-Public Use
  Company Number: US-SA-2014SA060804

PATIENT
  Age: 10 Year
  Sex: Male

DRUGS (1)
  1. ALLEGRA [Suspect]
     Active Substance: FEXOFENADINE HYDROCHLORIDE
     Indication: HYPERSENSITIVITY
     Dosage: DOSE- 30 MG TABLET 2 IN THE MORNING AND 2 IN THE EVENING
     Route: 048

REACTIONS (4)
  - Multiple allergies [Unknown]
  - Extra dose administered [Unknown]
  - Drug prescribing error [Unknown]
  - Product taste abnormal [Unknown]
